FAERS Safety Report 8157983-6 (Version None)
Quarter: 2012Q1

REPORT INFORMATION
  Report Type: 
  Country: None (occurrence: None)
  Receive Date: 20120222
  Receipt Date: 20120213
  Transmission Date: 20120608
  Serious: Yes (Other)
  Sender: FDA-Public Use
  Company Number: PHHY2011TW13288

PATIENT
  Sex: Female
  Weight: 80 kg

DRUGS (19)
  1. ZOLEDRONIC [Suspect]
     Dosage: 4 MG,
     Route: 042
     Dates: start: 20120119, end: 20120119
  2. DICLOFENAC POTASSIUM [Concomitant]
     Dosage: 75 MG, TID
     Route: 048
     Dates: start: 20110211, end: 20110213
  3. ZOLEDRONIC [Suspect]
     Dosage: 4 MG,
     Route: 042
     Dates: start: 20110221, end: 20110613
  4. AUGMENTIN '125' [Concomitant]
     Indication: CELLULITIS
     Dosage: 2 G, Q12H
     Route: 048
     Dates: start: 20110108, end: 20110111
  5. ZOLEDRONIC [Suspect]
     Indication: METASTASES TO BONE
     Dosage: 4 MG,
     Route: 042
     Dates: start: 20090811, end: 20101220
  6. NEFOPAM [Concomitant]
     Indication: ANALGESIC THERAPY
     Dosage: 90 MG, TID
     Dates: start: 20101222, end: 20101225
  7. AUGMENTIN '125' [Concomitant]
     Dosage: 2 G, Q12H
     Route: 048
     Dates: start: 20110211, end: 20110217
  8. SERRATIOPEPTIDASE [Concomitant]
     Indication: CELLULITIS
     Dosage: 15 MG, TID
     Route: 048
     Dates: start: 20110131, end: 20110206
  9. SERRATIOPEPTIDASE [Concomitant]
     Dosage: 15 MG, TID
     Route: 048
     Dates: start: 20110211, end: 20110217
  10. AUGMENTIN '125' [Concomitant]
     Dosage: 2 G, Q12H
     Route: 048
     Dates: start: 20110131, end: 20110206
  11. AMOXICILLIN [Concomitant]
     Indication: INFECTION
     Dosage: 750 MG, Q8H
     Route: 048
     Dates: start: 20101222, end: 20101225
  12. GENTAMICIN [Concomitant]
     Indication: CELLULITIS
     Dosage: 80 MG, STAT
     Route: 042
     Dates: start: 20110108, end: 20110108
  13. PENICILLIN G [Concomitant]
     Indication: CELLULITIS
     Dosage: 3 MIU, STAT
     Route: 042
     Dates: start: 20110108, end: 20110108
  14. DICLOFENAC POTASSIUM [Concomitant]
     Indication: ANALGESIC THERAPY
     Dosage: 75 MG, TID
     Route: 048
     Dates: start: 20110108, end: 20110111
  15. DICLOFENAC POTASSIUM [Concomitant]
     Dosage: 75 MG, TID
     Route: 048
     Dates: start: 20110221, end: 20110223
  16. KETOROLAC TROMETHAMINE [Concomitant]
     Indication: ANALGESIC THERAPY
     Dosage: 15 MG, STAT
     Route: 042
     Dates: start: 20110108, end: 20110108
  17. SERRATIOPEPTIDASE [Concomitant]
     Dosage: 15 MG, TID
     Route: 048
     Dates: start: 20110221, end: 20110227
  18. AUGMENTIN '125' [Concomitant]
     Dosage: 2 G, Q12H
     Route: 048
     Dates: start: 20110221, end: 20110227
  19. DICLOFENAC POTASSIUM [Concomitant]
     Dosage: 75 MG, TID
     Route: 048
     Dates: start: 20110131, end: 20110206

REACTIONS (13)
  - OSTEONECROSIS [None]
  - PAIN IN JAW [None]
  - DENTAL PLAQUE [None]
  - CHRONIC SINUSITIS [None]
  - CELLULITIS [None]
  - IMPAIRED HEALING [None]
  - GINGIVITIS [None]
  - BONE DISORDER [None]
  - OSTEONECROSIS OF JAW [None]
  - GINGIVAL BLEEDING [None]
  - GINGIVAL ERYTHEMA [None]
  - OSTEOMYELITIS [None]
  - SOFT TISSUE INFECTION [None]
